FAERS Safety Report 4284221-7 (Version None)
Quarter: 2004Q1

REPORT INFORMATION
  Report Type: 
  Country: None (occurrence: None)
  Receive Date: 20040130
  Receipt Date: 20040120
  Transmission Date: 20041129
  Serious: Yes (Hospitalization)
  Sender: FDA-Public Use
  Company Number: DE-JNJFOC-20040103954

PATIENT

DRUGS (1)
  1. REMICADE [Suspect]

REACTIONS (1)
  - LIMB OPERATION [None]
